FAERS Safety Report 24257066 (Version 1)
Quarter: 2024Q3

REPORT INFORMATION
  Report Type: Other
  Country: US (occurrence: US)
  Receive Date: 20240828
  Receipt Date: 20240828
  Transmission Date: 20241016
  Serious: No
  Sender: WOODWARD PHARMA SERVICES
  Company Number: US-WW-2024-38629004

PATIENT
  Age: 53 Year
  Sex: Female

DRUGS (5)
  1. FLUCONAZOLE [Suspect]
     Active Substance: FLUCONAZOLE
     Indication: Coccidioidomycosis
  2. ADALIMUMAB [Concomitant]
     Active Substance: ADALIMUMAB
     Indication: Iritis
  3. ADALIMUMAB [Concomitant]
     Active Substance: ADALIMUMAB
     Indication: Ankylosing spondylitis
  4. CEPHALEXIN [Concomitant]
     Active Substance: CEPHALEXIN
     Indication: Coccidioidomycosis
  5. CLINDAMYCIN [Concomitant]
     Active Substance: CLINDAMYCIN
     Indication: Coccidioidomycosis

REACTIONS (2)
  - Alopecia [Unknown]
  - Dysgeusia [Unknown]
